FAERS Safety Report 25034919 (Version 1)
Quarter: 2025Q1

REPORT INFORMATION
  Report Type: Spontaneous
  Country: US (occurrence: US)
  Receive Date: 20250304
  Receipt Date: 20250304
  Transmission Date: 20250409
  Serious: No
  Sender: Haleon PLC
  Company Number: US-HALEON-2231104

PATIENT
  Age: 29 Year
  Sex: Female

DRUGS (1)
  1. THERAFLU SEVERE COLD RELIEF NIGHTTIME (ACETAMINOPHEN\DIPHENHYDRAMINE H [Suspect]
     Active Substance: ACETAMINOPHEN\DIPHENHYDRAMINE HYDROCHLORIDE
     Indication: Oropharyngeal pain
     Dates: start: 20250228, end: 20250228

REACTIONS (3)
  - Hypersensitivity [Recovered/Resolved]
  - Erythema [Recovered/Resolved]
  - Urticaria [Recovered/Resolved]

NARRATIVE: CASE EVENT DATE: 20250228
